FAERS Safety Report 20668998 (Version 4)
Quarter: 2022Q3

REPORT INFORMATION
  Report Type: Spontaneous
  Country: CA (occurrence: CA)
  Receive Date: 20220404
  Receipt Date: 20220712
  Transmission Date: 20221026
  Serious: Yes (Hospitalization, Other)
  Sender: FDA-Public Use
  Company Number: CA-GSKCCFAMERS-Case-01333299_AE-77484

PATIENT

DRUGS (1)
  1. FLOVENT HFA [Suspect]
     Active Substance: FLUTICASONE PROPIONATE
     Indication: Asthma
     Dosage: UNK
     Route: 055

REACTIONS (14)
  - Gingival pain [Unknown]
  - Gingival disorder [Unknown]
  - Memory impairment [Unknown]
  - Respiratory disorder [Unknown]
  - Throat irritation [Unknown]
  - Splenic thrombosis [Unknown]
  - Emphysema [Unknown]
  - Dyspnoea [Unknown]
  - Fatigue [Unknown]
  - Implant site pain [Unknown]
  - Lung disorder [Unknown]
  - Respiratory tract irritation [Unknown]
  - Cough [Unknown]
  - Drug ineffective [Unknown]

NARRATIVE: CASE EVENT DATE: 20220101
